FAERS Safety Report 14996705 (Version 1)
Quarter: 2018Q2

REPORT INFORMATION
  Report Type: Spontaneous
  Country: US (occurrence: US)
  Receive Date: 20180522
  Receipt Date: 20180522
  Transmission Date: 20180711
  Serious: Yes (Other)
  Sender: FDA-Public Use
  Company Number: None

PATIENT
  Age: 49 Year
  Sex: Female
  Weight: 65.25 kg

DRUGS (11)
  1. SINGULAIR [Concomitant]
     Active Substance: MONTELUKAST SODIUM
  2. VENLAFAXINE [Concomitant]
     Active Substance: VENLAFAXINE HYDROCHLORIDE
  3. FISH OIL [Concomitant]
     Active Substance: FISH OIL
  4. VITAMIN C [Concomitant]
     Active Substance: ASCORBIC ACID
  5. BIOTIN [Concomitant]
     Active Substance: BIOTIN
  6. AMBIEN [Concomitant]
     Active Substance: ZOLPIDEM TARTRATE
  7. NAPROXEN DR/EC 500MG TABLETS [Suspect]
     Active Substance: NAPROXEN
     Indication: PLANTAR FASCIITIS
     Dosage: ?          QUANTITY:1 TABLET(S);?
     Route: 048
     Dates: start: 20180507, end: 20180517
  8. FLEXERIL [Concomitant]
     Active Substance: CYCLOBENZAPRINE HYDROCHLORIDE
  9. ESTRODIAL [Concomitant]
     Active Substance: ESTRADIOL
  10. MULTI VITAMIN AND MINERAL [Concomitant]
  11. VITAMIN B [Concomitant]
     Active Substance: VITAMIN B

REACTIONS (16)
  - Blister [None]
  - Dyspepsia [None]
  - Nervous system disorder [None]
  - Memory impairment [None]
  - Paraesthesia [None]
  - Mental disorder [None]
  - Oesophageal disorder [None]
  - Thirst [None]
  - Impaired work ability [None]
  - Rash macular [None]
  - Fatigue [None]
  - Confusional state [None]
  - Pruritus [None]
  - Loss of personal independence in daily activities [None]
  - Feeling abnormal [None]
  - Skin discolouration [None]

NARRATIVE: CASE EVENT DATE: 20180507
